FAERS Safety Report 9678778 (Version 2)
Quarter: 2013Q4

REPORT INFORMATION
  Report Type: Report from Study
  Country: US (occurrence: US)
  Receive Date: 20131108
  Receipt Date: 20131108
  Transmission Date: 20140711
  Serious: Yes (Hospitalization)
  Sender: FDA-Public Use
  Company Number: US-PFIZER INC-US-WYE-H11588909

PATIENT
  Age: 59 Year
  Sex: Male
  Weight: 114 kg

DRUGS (19)
  1. SIROLIMUS [Suspect]
     Indication: IMMUNOSUPPRESSION
     Dosage: 2.0 MG, 1X/DAY
     Route: 048
     Dates: start: 20090609
  2. RAMIPRIL [Suspect]
     Indication: PROTEINURIA
     Dosage: 5.0 MG, 1X/DAY
     Route: 048
     Dates: start: 20090518, end: 20091013
  3. RAMIPRIL [Suspect]
     Dosage: 5.0 MG, 1X/DAY
     Route: 048
     Dates: start: 20091016
  4. MINOXIDIL [Suspect]
     Dosage: UNK
     Dates: start: 20040618, end: 20091012
  5. BUMETANIDE [Suspect]
     Dosage: UNK
     Dates: start: 20091005, end: 20091012
  6. AUGMENTIN [Concomitant]
     Dosage: UNK
     Route: 048
     Dates: start: 200910
  7. LIPITOR [Concomitant]
     Dosage: UNK
     Route: 065
     Dates: start: 20091016
  8. ROCALTROL [Concomitant]
     Dosage: UNK
     Route: 048
     Dates: start: 20040420
  9. CALCIUM CARBONATE [Concomitant]
     Dosage: UNK
     Route: 048
     Dates: start: 20040413
  10. CYCLOSPORINE [Concomitant]
     Dosage: UNK
     Route: 065
     Dates: start: 20091022
  11. ERGOCALCIFEROL [Concomitant]
     Dosage: UNK
     Route: 048
     Dates: start: 20061013
  12. PEPCID [Concomitant]
     Dosage: UNK
     Route: 048
     Dates: start: 20040329
  13. HYDROXYZINE [Concomitant]
     Route: 065
  14. LABETALOL [Concomitant]
     Dosage: UNK
     Route: 048
     Dates: start: 20050107
  15. MAGNESIUM OXIDE [Concomitant]
     Dosage: UNK
     Route: 065
     Dates: start: 20040413
  16. MYFORTIC [Concomitant]
     Dosage: UNK
     Route: 065
     Dates: start: 20040330
  17. PREDNISONE [Concomitant]
     Dosage: UNK
     Route: 065
     Dates: start: 20040320
  18. CRESTOR [Concomitant]
     Route: 065
  19. ALDACTONE [Concomitant]
     Dosage: UNK
     Route: 065
     Dates: start: 20050311

REACTIONS (3)
  - Blood creatinine increased [Recovered/Resolved]
  - Dyspnoea [Recovered/Resolved]
  - Generalised oedema [Recovered/Resolved]
